FAERS Safety Report 7346884-9 (Version None)
Quarter: 2011Q1

REPORT INFORMATION
  Report Type: 
  Country: None (occurrence: None)
  Receive Date: 20110311
  Receipt Date: 20110304
  Transmission Date: 20110831
  Serious: Yes (Other)
  Sender: FDA-Public Use
  Company Number: US-JNJFOC-20110302755

PATIENT
  Age: 28 Year
  Sex: Female
  Weight: 90.72 kg

DRUGS (4)
  1. MONISTAT 1 COMBINATION PACK [Suspect]
     Route: 067
  2. MONISTAT 1 COMBINATION PACK [Suspect]
     Indication: VULVOVAGINAL MYCOTIC INFECTION
     Route: 067
  3. MONISTAT 1 COMBINATION PACK [Suspect]
     Route: 067
  4. MONISTAT 1 COMBINATION PACK [Suspect]
     Route: 067

REACTIONS (4)
  - VULVOVAGINAL DISCOMFORT [None]
  - NERVE INJURY [None]
  - VULVOVAGINAL PAIN [None]
  - VULVOVAGINAL BURNING SENSATION [None]
